FAERS Safety Report 17162493 (Version 4)
Quarter: 2020Q2

REPORT INFORMATION
  Report Type: Spontaneous
  Country: US (occurrence: US)
  Receive Date: 20191217
  Receipt Date: 20200514
  Transmission Date: 20200713
  Serious: Yes (Other)
  Sender: FDA-Public Use
  Company Number: US-GILEAD-2019-0442861

PATIENT
  Sex: Male
  Weight: 107.03 kg

DRUGS (45)
  1. SILDENAFIL. [Concomitant]
     Active Substance: SILDENAFIL
  2. VITAMIN D NOS [Concomitant]
     Active Substance: VITAMIN D NOS
  3. BIKTARVY [Concomitant]
     Active Substance: BICTEGRAVIR SODIUM\EMTRICITABINE\TENOFOVIR ALAFENAMIDE FUMARATE
  4. CYCLOBENZAPRINE. [Concomitant]
     Active Substance: CYCLOBENZAPRINE
  5. LEVITRA [Concomitant]
     Active Substance: VARDENAFIL HYDROCHLORIDE
  6. DIFLUCAN [Concomitant]
     Active Substance: FLUCONAZOLE
  7. CHERATUSSIN AC [Concomitant]
     Active Substance: CODEINE PHOSPHATE\GUAIFENESIN
  8. ENDOCET [Concomitant]
     Active Substance: ACETAMINOPHEN\OXYCODONE HYDROCHLORIDE
  9. PROAIR HFA [Concomitant]
     Active Substance: ALBUTEROL SULFATE
  10. RANITIDINE. [Concomitant]
     Active Substance: RANITIDINE
  11. CELEBREX [Concomitant]
     Active Substance: CELECOXIB
  12. ALBUTEROL SULFATE. [Concomitant]
     Active Substance: ALBUTEROL SULFATE
  13. ONDANSETRON [Concomitant]
     Active Substance: ONDANSETRON
  14. ZOLPIDEM [Concomitant]
     Active Substance: ZOLPIDEM TARTRATE
  15. MORPHINE SULFATE. [Concomitant]
     Active Substance: MORPHINE SULFATE
  16. REYATAZ [Concomitant]
     Active Substance: ATAZANAVIR SULFATE
  17. KETOCONAZOLE. [Concomitant]
     Active Substance: KETOCONAZOLE
  18. KALETRA [Concomitant]
     Active Substance: LOPINAVIR\RITONAVIR
  19. CEFUROXIME. [Concomitant]
     Active Substance: CEFUROXIME
  20. BUPROPION. [Concomitant]
     Active Substance: BUPROPION
  21. VIREAD [Suspect]
     Active Substance: TENOFOVIR DISOPROXIL FUMARATE
     Indication: HIV INFECTION
     Dosage: UNK
     Route: 048
     Dates: start: 20040812, end: 20041205
  22. AMBISOME [Suspect]
     Active Substance: AMPHOTERICIN B
     Indication: PRODUCT USED FOR UNKNOWN INDICATION
     Dosage: UNK
     Route: 065
     Dates: start: 2008
  23. NORVIR [Concomitant]
     Active Substance: RITONAVIR
  24. OXYCODONE [Concomitant]
     Active Substance: OXYCODONE
  25. ROPINIROLE. [Concomitant]
     Active Substance: ROPINIROLE
  26. PREPOPIK [Concomitant]
     Active Substance: ANHYDROUS CITRIC ACID\MAGNESIUM OXIDE\SODIUM PICOSULFATE
  27. TRIAMCINOLONE ACETONIDE ACETATE [Concomitant]
     Active Substance: TRIAMCINOLONE ACETONIDE
  28. BENADRYL [Concomitant]
     Active Substance: DIPHENHYDRAMINE HYDROCHLORIDE
  29. CLINDAMYCIN. [Concomitant]
     Active Substance: CLINDAMYCIN
  30. BIAXIN [Concomitant]
     Active Substance: CLARITHROMYCIN
  31. MYCOBUTIN [Concomitant]
     Active Substance: RIFABUTIN
  32. ALLEGRA-D [Concomitant]
     Active Substance: FEXOFENADINE\PSEUDOEPHEDRINE
  33. TRUVADA [Suspect]
     Active Substance: EMTRICITABINE\TENOFOVIR DISOPROXIL FUMARATE
     Indication: HIV INFECTION
     Dosage: 1 DOSAGE FORM, QD
     Route: 048
     Dates: start: 200411, end: 20170113
  34. TESTOSTERONE CYPIONATE. [Concomitant]
     Active Substance: TESTOSTERONE CYPIONATE
  35. OMEPRAZOLE. [Concomitant]
     Active Substance: OMEPRAZOLE
  36. DOCUSATE SODIUM. [Concomitant]
     Active Substance: DOCUSATE SODIUM
  37. NYSTATIN. [Concomitant]
     Active Substance: NYSTATIN
  38. ETHAMBUTOL [Concomitant]
     Active Substance: ETHAMBUTOL HYDROCHLORIDE
  39. SUSTIVA [Concomitant]
     Active Substance: EFAVIRENZ
  40. NICODERM CQ [Concomitant]
     Active Substance: NICOTINE
  41. DESCOVY [Concomitant]
     Active Substance: EMTRICITABINE\TENOFOVIR ALAFENAMIDE FUMARATE
     Dosage: UNK
     Dates: start: 201702
  42. ZOLOFT [Concomitant]
     Active Substance: SERTRALINE HYDROCHLORIDE
  43. LORATADINE. [Concomitant]
     Active Substance: LORATADINE
  44. ZITHROMAX [Concomitant]
     Active Substance: AZITHROMYCIN DIHYDRATE
  45. HYDROCODONE/ACETAMINOPHEN [Concomitant]
     Active Substance: ACETAMINOPHEN\HYDROCODONE

REACTIONS (10)
  - Emotional distress [Unknown]
  - Anxiety [Unknown]
  - Renal failure [Unknown]
  - Osteopenia [Unknown]
  - Pain [Unknown]
  - Acute kidney injury [Unknown]
  - Economic problem [Unknown]
  - Chronic kidney disease [Not Recovered/Not Resolved]
  - Bone density decreased [Unknown]
  - Anhedonia [Unknown]

NARRATIVE: CASE EVENT DATE: 2008
